FAERS Safety Report 4340257-9 (Version None)
Quarter: 2004Q2

REPORT INFORMATION
  Report Type: 
  Country: None (occurrence: None)
  Receive Date: 20040414
  Receipt Date: 20040330
  Transmission Date: 20050107
  Serious: Yes (Other)
  Sender: FDA-Public Use
  Company Number: A0505160A

PATIENT
  Age: 58 Year
  Sex: Female

DRUGS (1)
  1. COMMIT [Suspect]
     Indication: EX-SMOKER
     Dosage: 4 MG/ TRANSBUCCAL

REACTIONS (5)
  - BLADDER DISORDER [None]
  - DRUG DEPENDENCE [None]
  - IRRITABILITY [None]
  - NERVOUSNESS [None]
  - POLLAKIURIA [None]
